FAERS Safety Report 4870758-6 (Version None)
Quarter: 2006Q1

REPORT INFORMATION
  Report Type: 
  Country: None (occurrence: None)
  Receive Date: 20060103
  Receipt Date: 20010402
  Transmission Date: 20060701
  Serious: Yes (Hospitalization)
  Sender: FDA-Public Use
  Company Number: US-ROCHE-257998

PATIENT
  Age: 27 Year
  Sex: Female
  Weight: 86.4 kg

DRUGS (14)
  1. DACLIZUMAB [Suspect]
     Route: 042
     Dates: start: 20010220
  2. MYCOPHENOLATE MOFETIL [Suspect]
     Route: 048
     Dates: start: 20010221
  3. NEORAL [Suspect]
     Route: 048
     Dates: start: 20010328
  4. PREDNISONE TAB [Suspect]
     Route: 048
     Dates: start: 20010330
  5. ZANTAC [Concomitant]
     Dates: start: 20010223
  6. ASPIRIN [Concomitant]
     Dates: start: 20010221
  7. NORVASC [Concomitant]
     Dates: start: 20010306
  8. BACTRIM DS [Concomitant]
     Route: 048
     Dates: start: 20010221
  9. CITRACAL + D [Concomitant]
     Route: 048
     Dates: start: 20010401
  10. PRAVACHOL [Concomitant]
     Dates: start: 20010227
  11. MAGNESIUM OXIDE [Concomitant]
     Dates: start: 20010220
  12. CYTOVENE [Concomitant]
     Dates: start: 20010401
  13. TERBUTALINE [Concomitant]
     Dates: start: 20010223
  14. VICODIN [Concomitant]
     Dates: start: 20010303

REACTIONS (1)
  - PNEUMONIA [None]
